FAERS Safety Report 4664492-5 (Version None)
Quarter: 2005Q2

REPORT INFORMATION
  Report Type: 
  Country: None (occurrence: None)
  Receive Date: 20050518
  Receipt Date: 20050511
  Transmission Date: 20051028
  Serious: Yes (Hospitalization, Other)
  Sender: FDA-Public Use
  Company Number: 200514169GDDC

PATIENT
  Age: 31 Year
  Sex: Female

DRUGS (2)
  1. LANTUS [Suspect]
     Indication: DIABETES MELLITUS INSULIN-DEPENDENT
     Dates: start: 20050101
  2. SHORT ACTING INSULIN [Concomitant]
     Indication: DIABETES MELLITUS INSULIN-DEPENDENT

REACTIONS (5)
  - ARTHRALGIA [None]
  - HEADACHE [None]
  - MYALGIA [None]
  - NEUTROPENIA [None]
  - VIRAL INFECTION [None]
